FAERS Safety Report 23301911 (Version 1)
Quarter: 2023Q4

REPORT INFORMATION
  Report Type: Other
  Country: None (occurrence: IR)
  Receive Date: 20231215
  Receipt Date: 20231215
  Transmission Date: 20240110
  Serious: Yes (Life-Threatening, Hospitalization, Other)
  Sender: FDA-Public Use
  Company Number: IR-ASPIRO PHARMA LTD-2149393

PATIENT
  Age: 20 Year
  Sex: Female
  Weight: 60 kg

DRUGS (1)
  1. ACETAMINOPHEN [Suspect]
     Active Substance: ACETAMINOPHEN
     Indication: Product used for unknown indication
     Route: 048

REACTIONS (6)
  - Coma [Unknown]
  - Pneumonia aspiration [Unknown]
  - Toxicity to various agents [Unknown]
  - Hyperammonaemia [Recovered/Resolved]
  - Acute hepatic failure [Recovered/Resolved]
  - Overdose [Unknown]
